FAERS Safety Report 4363569-1 (Version None)
Quarter: 2004Q2

REPORT INFORMATION
  Report Type: 
  Country: None (occurrence: None)
  Receive Date: 20040517
  Receipt Date: 20040309
  Transmission Date: 20050107
  Serious: No
  Sender: FDA-Public Use
  Company Number: S04-USA-01253-01

PATIENT
  Age: 86 Year
  Sex: Female

DRUGS (8)
  1. NAMENDA [Suspect]
     Indication: DEMENTIA ALZHEIMER'S TYPE
     Dosage: 5 MG QD PO
     Route: 048
     Dates: start: 20040220, end: 20040226
  2. NAMENDA [Suspect]
     Indication: DEMENTIA ALZHEIMER'S TYPE
     Dosage: 5 MG BID PO
     Route: 048
     Dates: start: 20040227
  3. ARICEPT [Concomitant]
  4. COREG [Concomitant]
  5. LIPITOR [Concomitant]
  6. PROZAC [Concomitant]
  7. PREVACID [Concomitant]
  8. CAPOTEN [Concomitant]

REACTIONS (2)
  - CONFUSIONAL STATE [None]
  - FATIGUE [None]
